FAERS Safety Report 25046846 (Version 1)
Quarter: 2025Q1

REPORT INFORMATION
  Report Type: Spontaneous
  Country: JP (occurrence: JP)
  Receive Date: 20250306
  Receipt Date: 20250306
  Transmission Date: 20250408
  Serious: Yes (Other)
  Sender: ALEXION PHARMACEUTICALS
  Company Number: JP-ASTRAZENECA-250020685_063010_P_1

PATIENT
  Age: 71 Year

DRUGS (6)
  1. DAPAGLIFLOZIN [Suspect]
     Active Substance: DAPAGLIFLOZIN
     Indication: Chronic kidney disease
     Dosage: AFTER BREAKFAST
  2. CANDESARTAN [Concomitant]
     Active Substance: CANDESARTAN
     Dosage: AFTER BREAKFAST
  3. AMLODIPINE BESYLATE [Concomitant]
     Active Substance: AMLODIPINE BESYLATE
     Dosage: AFTER BREAKFAST
  4. TRICHLORMETHIAZIDE [Concomitant]
     Active Substance: TRICHLORMETHIAZIDE
     Dosage: AFTER BREAKFAST
  5. ALLOPURINOL [Concomitant]
     Active Substance: ALLOPURINOL
     Dosage: AFTER BREAKFAST AND DINNER
  6. AMLODIPINE [Concomitant]
     Active Substance: AMLODIPINE BESYLATE
     Dosage: BEFORE BEDTIME

REACTIONS (1)
  - Renal impairment [Unknown]
